FAERS Safety Report 24809835 (Version 2)
Quarter: 2025Q1

REPORT INFORMATION
  Report Type: Spontaneous
  Country: ID (occurrence: ID)
  Receive Date: 20250106
  Receipt Date: 20250111
  Transmission Date: 20250409
  Serious: Yes (Other)
  Sender: ACCORD
  Company Number: ID-Accord-462734

PATIENT
  Age: 45 Year
  Sex: Male

DRUGS (6)
  1. GEMCITABINE [Suspect]
     Active Substance: GEMCITABINE
     Indication: Gallbladder adenocarcinoma
     Dosage: ON DAY-1 AND DAY-8
  2. CAPECITABINE [Suspect]
     Active Substance: CAPECITABINE
     Indication: Gallbladder adenocarcinoma
     Dosage: TOTAL OF SIX CYCLES EVERY 28 DAYS (WITH DIVIDED DOSES EVERY 14 DAYS), 1000 MG CAPECITABINE
  3. AMLODIPINE [Concomitant]
     Active Substance: AMLODIPINE BESYLATE
     Indication: Hypertension
  4. ATORVASTATIN [Concomitant]
     Active Substance: ATORVASTATIN
     Indication: Hypertension
  5. GEMCITABINE [Suspect]
     Active Substance: GEMCITABINE
     Indication: Metastases to liver
     Dosage: ON DAY-1 AND DAY-8
  6. CAPECITABINE [Suspect]
     Active Substance: CAPECITABINE
     Indication: Metastases to liver
     Dosage: TOTAL OF SIX CYCLES EVERY 28 DAYS (WITH DIVIDED DOSES EVERY 14 DAYS), 1000 MG CAPECITABINE

REACTIONS (1)
  - Deep vein thrombosis [Recovered/Resolved]
